FAERS Safety Report 8528787-7 (Version None)
Quarter: 2012Q3

REPORT INFORMATION
  Report Type: 
  Country: None (occurrence: None)
  Receive Date: 20120716
  Receipt Date: 20120716
  Transmission Date: 20120928
  Serious: Yes (Hospitalization)
  Sender: FDA-Public Use
  Company Number: None

PATIENT
  Sex: Male
  Weight: 74.09 kg

DRUGS (11)
  1. PACLITAXEL [Suspect]
     Indication: METASTATIC MALIGNANT MELANOMA
     Dosage: 360MG Q 21 DAYS IV
     Route: 042
     Dates: start: 20120305
  2. PACLITAXEL [Suspect]
     Indication: METASTATIC MALIGNANT MELANOMA
     Dosage: 360MG Q 21 DAYS IV
     Route: 042
     Dates: start: 20120402
  3. PACLITAXEL [Suspect]
     Indication: METASTATIC MALIGNANT MELANOMA
     Dosage: 360MG Q 21 DAYS IV
     Route: 042
     Dates: start: 20120702
  4. PACLITAXEL [Suspect]
     Indication: METASTATIC MALIGNANT MELANOMA
     Dosage: 360MG Q 21 DAYS IV
     Route: 042
     Dates: start: 20120502
  5. PACLITAXEL [Suspect]
     Indication: METASTATIC MALIGNANT MELANOMA
     Dosage: 360MG Q 21 DAYS IV
     Route: 042
     Dates: start: 20120530
  6. TEMOZOLOMIDE [Concomitant]
  7. CARBOPLATIN [Suspect]
     Indication: METASTATIC MALIGNANT MELANOMA
     Dosage: 500MG Q 21 DAYS IV
     Route: 042
     Dates: start: 20120530
  8. CARBOPLATIN [Suspect]
     Indication: METASTATIC MALIGNANT MELANOMA
     Dosage: 500MG Q 21 DAYS IV
     Route: 042
     Dates: start: 20120702
  9. CARBOPLATIN [Suspect]
     Indication: METASTATIC MALIGNANT MELANOMA
     Dosage: 500MG Q 21 DAYS IV
     Route: 042
     Dates: start: 20120502
  10. CARBOPLATIN [Suspect]
     Indication: METASTATIC MALIGNANT MELANOMA
     Dosage: 500MG Q 21 DAYS IV
     Route: 042
     Dates: start: 20120305
  11. CARBOPLATIN [Suspect]
     Indication: METASTATIC MALIGNANT MELANOMA
     Dosage: 500MG Q 21 DAYS IV
     Route: 042
     Dates: start: 20120402

REACTIONS (10)
  - HAEMORRHAGE [None]
  - METASTASES TO CENTRAL NERVOUS SYSTEM [None]
  - MENTAL STATUS CHANGES [None]
  - MEMORY IMPAIRMENT [None]
  - FALL [None]
  - EXCORIATION [None]
  - CEREBROVASCULAR ACCIDENT [None]
  - CONFUSIONAL STATE [None]
  - DISORIENTATION [None]
  - INFECTION [None]
